FAERS Safety Report 4263644-6 (Version None)
Quarter: 2004Q1

REPORT INFORMATION
  Report Type: 
  Country: None (occurrence: None)
  Receive Date: 20040102
  Receipt Date: 20031219
  Transmission Date: 20041129
  Serious: Yes (Hospitalization, Other)
  Sender: FDA-Public Use
  Company Number: FRWYE476419DEC03

PATIENT
  Age: 40 Year
  Sex: Female

DRUGS (2)
  1. SIROLIMUS (SIROLIMUS, TABLET, 0) [Suspect]
     Indication: PROPHYLAXIS AGAINST TRANSPLANT REJECTION
     Dosage: 4 MG DAILY AT TIME OF EVENT ONSET, ORAL
     Route: 048
     Dates: start: 20030310
  2. CELLCEPT [Concomitant]

REACTIONS (2)
  - RENAL ARTERY STENOSIS [None]
  - RENAL IMPAIRMENT [None]
